FAERS Safety Report 20716981 (Version 2)
Quarter: 2022Q2

REPORT INFORMATION
  Report Type: Spontaneous
  Country: US (occurrence: None)
  Receive Date: 20220417
  Receipt Date: 20220427
  Transmission Date: 20220721
  Serious: Yes (Death)
  Sender: FDA-Public Use
  Company Number: US-ROCHE-3077498

PATIENT
  Age: 83 Year
  Sex: Male

DRUGS (3)
  1. ACTEMRA [Suspect]
     Active Substance: TOCILIZUMAB
     Indication: Rheumatoid arthritis
     Dosage: (STRENGTH:162MG/0.9ML)
     Route: 058
     Dates: start: 201801
  2. ACTEMRA [Suspect]
     Active Substance: TOCILIZUMAB
  3. ACTEMRA [Suspect]
     Active Substance: TOCILIZUMAB

REACTIONS (1)
  - Death [Fatal]

NARRATIVE: CASE EVENT DATE: 20220401
